FAERS Safety Report 4390631-X (Version None)
Quarter: 2004Q2

REPORT INFORMATION
  Report Type: 
  Country: None (occurrence: None)
  Receive Date: 20040628
  Receipt Date: 20040609
  Transmission Date: 20050107
  Serious: Yes (Life-Threatening)
  Sender: FDA-Public Use
  Company Number: 2004AP03068

PATIENT
  Age: 42 Year
  Sex: Female

DRUGS (2)
  1. XYLOCAINE [Suspect]
     Indication: INFILTRATION ANAESTHESIA
  2. XYLOCAINE [Suspect]
     Indication: INFILTRATION ANAESTHESIA

REACTIONS (6)
  - ARTERIOSPASM CORONARY [None]
  - BLOOD PRESSURE INCREASED [None]
  - CHEST PAIN [None]
  - CONVULSION [None]
  - DEPRESSED LEVEL OF CONSCIOUSNESS [None]
  - VENTRICULAR FIBRILLATION [None]
